FAERS Safety Report 13190320 (Version 1)
Quarter: 2020Q3

REPORT INFORMATION
  Report Type: Report from Study
  Country: DE (occurrence: DE)
  Receive Date: 20170206
  Receipt Date: 20170206
  Transmission Date: 20201104
  Serious: Yes (Hospitalization)
  Sender: FDA-Public Use
  Company Number: DE-JNJFOC-20170124008

PATIENT
  Sex: Male
  Weight: 3.78 kg

DRUGS (5)
  1. BELLISSIMA [Concomitant]
     Active Substance: CHLORMADINONE ACETATE\ETHINYL ESTRADIOL
     Indication: CONTRACEPTION
     Dosage: MOTHER^S DOSING
     Route: 064
  2. FOLIC ACID. [Concomitant]
     Active Substance: FOLIC ACID
     Indication: PROPHYLAXIS
     Dosage: MOTHER^S DOSING
     Route: 064
     Dates: start: 20151113, end: 20160725
  3. IRON [Concomitant]
     Active Substance: IRON
     Indication: IRON DEFICIENCY
     Dosage: MOTHER^S DOSING
     Route: 064
     Dates: start: 201605, end: 201607
  4. USTEKINUMAB [Suspect]
     Active Substance: USTEKINUMAB
     Indication: PSORIASIS
     Dosage: MOTHER^S DOSING
     Route: 064
     Dates: start: 20141211, end: 20150625
  5. USTEKINUMAB [Suspect]
     Active Substance: USTEKINUMAB
     Route: 064

REACTIONS (2)
  - Amniotic cavity infection [Unknown]
  - Foetal exposure during pregnancy [Unknown]

NARRATIVE: CASE EVENT DATE: 201606
